FAERS Safety Report 9433034 (Version 2)
Quarter: 2013Q3

REPORT INFORMATION
  Report Type: Spontaneous
  Country: US (occurrence: US)
  Receive Date: 20130731
  Receipt Date: 20130819
  Transmission Date: 20140515
  Serious: Yes (Hospitalization)
  Sender: FDA-Public Use
  Company Number: US-WATSON-2009-11919

PATIENT
  Age: 65 Year
  Sex: Male

DRUGS (10)
  1. CIPROFLOXACIN HYDROCHLORIDE (WATSON LABORATORIES) [Suspect]
     Indication: CELLULITIS
     Dosage: 500 MG, DAILY
     Route: 048
  2. FUROSEMIDE [Concomitant]
     Dosage: 20-40MG DAILY
  3. LISINOPRIL [Concomitant]
  4. METOPROLOL [Concomitant]
  5. WARFARIN [Concomitant]
  6. SIMVASTATIN [Concomitant]
  7. NIACIN [Concomitant]
  8. FOLIC ACID [Concomitant]
  9. POTASSIUM CHLORIDE [Concomitant]
  10. MULTIVITAMIN                       /00831701/ [Concomitant]

REACTIONS (4)
  - Renal failure acute [Recovering/Resolving]
  - Acute hepatic failure [Recovering/Resolving]
  - Jaundice cholestatic [Recovering/Resolving]
  - Hepatocellular injury [Recovering/Resolving]
